FAERS Safety Report 8990841 (Version 1)
Quarter: 2012Q4

REPORT INFORMATION
  Report Type: Spontaneous
  Country: US (occurrence: None)
  Receive Date: 20121226
  Receipt Date: 20121226
  Transmission Date: 20130627
  Serious: Yes (Disabling)
  Sender: FDA-Public Use
  Company Number: None

PATIENT
  Age: 25 Year
  Sex: Male
  Weight: 68.04 kg

DRUGS (1)
  1. PROPECIA 1MG MERCK [Suspect]
     Indication: ALOPECIA
     Dosage: 1mg 1/d po
     Route: 048
     Dates: start: 20101118, end: 20101128

REACTIONS (23)
  - Libido decreased [None]
  - Erectile dysfunction [None]
  - Penis disorder [None]
  - Dizziness [None]
  - Vertigo [None]
  - Disturbance in attention [None]
  - Testicular pain [None]
  - Cognitive disorder [None]
  - Headache [None]
  - Speech disorder [None]
  - Muscle spasms [None]
  - Anxiety [None]
  - Testicular atrophy [None]
  - Semen viscosity increased [None]
  - Semen volume decreased [None]
  - Fatigue [None]
  - Depression [None]
  - Vitreous floaters [None]
  - Dark circles under eyes [None]
  - Muscular weakness [None]
  - Dyspnoea [None]
  - Mental impairment [None]
  - General physical health deterioration [None]
